FAERS Safety Report 18449600 (Version 1)
Quarter: 2020Q4

REPORT INFORMATION
  Report Type: Report from Study
  Country: DK (occurrence: DK)
  Receive Date: 20201102
  Receipt Date: 20201102
  Transmission Date: 20210114
  Serious: Yes (Hospitalization)
  Sender: FDA-Public Use
  Company Number: DK-ROCHE-2704343

PATIENT
  Age: 63 Year
  Sex: Male
  Weight: 86 kg

DRUGS (3)
  1. RITUXIMAB. [Suspect]
     Active Substance: RITUXIMAB
     Indication: CHRONIC LYMPHOCYTIC LEUKAEMIA
     Dosage: CYCLE 1: 375 MG/M2, D0; CYCLES 2-6: 500 MG/M2 D1; Q28D?MOST RECENT DOSE OF SE FORM: 29/JAN/2020 791
     Route: 042
     Dates: start: 20200129
  2. CYCLOPHOSPHAMIDE. [Suspect]
     Active Substance: CYCLOPHOSPHAMIDE
     Indication: CHRONIC LYMPHOCYTIC LEUKAEMIA
     Dosage: MOST RECENT DOE: 31/JAN/2020 540 MG?CYCLES 1-6: 250 MG/M2, D1-3, Q28D
     Route: 042
     Dates: start: 20200129
  3. FLUDARABINE PHOSPHATE. [Suspect]
     Active Substance: FLUDARABINE PHOSPHATE
     Indication: CHRONIC LYMPHOCYTIC LEUKAEMIA
     Dosage: CYCLES 1-6: 25 MG/M2, D1-3, Q28D?MOST RECENT DOSE: 31/JAN/2020 540 MG
     Route: 042
     Dates: start: 20200129

REACTIONS (1)
  - Fall [Unknown]

NARRATIVE: CASE EVENT DATE: 20200410
